FAERS Safety Report 8145944-2 (Version None)
Quarter: 2012Q1

REPORT INFORMATION
  Report Type: 
  Country: None (occurrence: None)
  Receive Date: 20120217
  Receipt Date: 20110628
  Transmission Date: 20120608
  Serious: No
  Sender: FDA-Public Use
  Company Number: US-ABBOTT-11P-163-0834805-00

PATIENT
  Sex: Male
  Weight: 113.5 kg

DRUGS (2)
  1. SIMCOR [Suspect]
     Indication: BLOOD TRIGLYCERIDES INCREASED
     Dosage: 1000MG/UNKNOWN MG AT BEDTIME
     Dates: start: 20100101
  2. BLOOD PRESSURE MEDICINE [Concomitant]
     Indication: BLOOD PRESSURE

REACTIONS (2)
  - FLUSHING [None]
  - PARAESTHESIA [None]
